FAERS Safety Report 7581868-7 (Version None)
Quarter: 2011Q2

REPORT INFORMATION
  Report Type: 
  Country: None (occurrence: None)
  Receive Date: 20110629
  Receipt Date: 20101203
  Transmission Date: 20111010
  Serious: Yes (Other)
  Sender: FDA-Public Use
  Company Number: PHFR2010GB05770

PATIENT
  Sex: Male

DRUGS (2)
  1. CLOZAPINE [Suspect]
     Indication: SCHIZOPHRENIA
     Route: 048
     Dates: start: 20070226, end: 20101201
  2. CLOZAPINE [Suspect]
     Dosage: 100 MG, ONCE/SINGLE
     Route: 065

REACTIONS (1)
  - MEDICATION ERROR [None]
